FAERS Safety Report 20702990 (Version 1)
Quarter: 2022Q2

REPORT INFORMATION
  Report Type: Spontaneous
  Country: FR (occurrence: FR)
  Receive Date: 20220413
  Receipt Date: 20220413
  Transmission Date: 20220721
  Serious: Yes (Other)
  Sender: FDA-Public Use
  Company Number: FR-BoehringerIngelheim-2022-BI-164232

PATIENT
  Age: 51 Year
  Sex: Male

DRUGS (1)
  1. CLONIDINE HYDROCHLORIDE [Suspect]
     Active Substance: CLONIDINE HYDROCHLORIDE
     Indication: Hypertension
     Dosage: 1 DF
     Route: 048
     Dates: start: 20211125, end: 20211126

REACTIONS (1)
  - Anaphylactic reaction [Recovered/Resolved]

NARRATIVE: CASE EVENT DATE: 20211126
